FAERS Safety Report 15275256 (Version 1)
Quarter: 2018Q3

REPORT INFORMATION
  Report Type: Spontaneous
  Country: MX (occurrence: MX)
  Receive Date: 20180814
  Receipt Date: 20180814
  Transmission Date: 20181010
  Serious: Yes (Hospitalization)
  Sender: FDA-Public Use
  Company Number: MX-ROCHE-2168901

PATIENT
  Age: 43 Year
  Sex: Female
  Weight: 66 kg

DRUGS (2)
  1. HERCEPTIN [Suspect]
     Active Substance: TRASTUZUMAB
     Indication: BREAST CANCER
     Dosage: IT CURRENTLY CONTINUES
     Route: 058
     Dates: start: 20171127
  2. HERCEPTIN [Suspect]
     Active Substance: TRASTUZUMAB
     Dosage: CYCLE NO. 8 WITH LATEST APPLICATION ON 16/JUL/2018
     Route: 058
     Dates: start: 20180219

REACTIONS (6)
  - Invasive ductal breast carcinoma [Recovered/Resolved]
  - Neoplasm [Recovered/Resolved]
  - Neutrophil count increased [Unknown]
  - Ejection fraction decreased [Not Recovered/Not Resolved]
  - Lymphocyte count decreased [Unknown]
  - Lymph node fibrosis [Recovered/Resolved]

NARRATIVE: CASE EVENT DATE: 20180420
